FAERS Safety Report 19269678 (Version 10)
Quarter: 2021Q3

REPORT INFORMATION
  Report Type: Report from Study
  Country: CN (occurrence: CN)
  Receive Date: 20210518
  Receipt Date: 20210827
  Transmission Date: 20211014
  Serious: Yes (Hospitalization)
  Sender: FDA-Public Use
  Company Number: CN-ROCHE-2829079

PATIENT
  Age: 64 Year
  Sex: Male
  Weight: 50 kg

DRUGS (27)
  1. INSULIN [Concomitant]
     Active Substance: INSULIN NOS
     Dates: start: 20210506, end: 20210506
  2. RANITIDINE. [Concomitant]
     Active Substance: RANITIDINE
     Dates: start: 20210507, end: 20210507
  3. COMPOUND SODIUM CHLORIDE INJECTION [Concomitant]
     Active Substance: SODIUM CHLORIDE
     Indication: NUTRITIONAL SUPPLEMENTATION
     Dates: start: 20210506, end: 20210506
  4. INSULIN [Concomitant]
     Active Substance: INSULIN NOS
     Dosage: 10 U
     Route: 042
     Dates: start: 20210513, end: 20210513
  5. PACLITAXEL. [Suspect]
     Active Substance: PACLITAXEL
     Indication: OESOPHAGEAL SQUAMOUS CELL CARCINOMA
     Dosage: MOST RECENT DOSE OF STUDY DRUG PRIOR TO AE/SAE: 07/MAY/2021
     Route: 042
     Dates: start: 20210507
  6. PROMETHAZINE HYDROCHLORIDE. [Concomitant]
     Active Substance: PROMETHAZINE HYDROCHLORIDE
     Route: 042
     Dates: start: 20210507, end: 20210507
  7. AZASETRON HYDROCHLORIDE [Concomitant]
     Active Substance: AZASETRON HYDROCHLORIDE
     Dates: start: 20210507, end: 20210507
  8. METHOCLOPRAMIDE [Concomitant]
     Active Substance: METOCLOPRAMIDE HYDROCHLORIDE
     Route: 030
     Dates: start: 20210511, end: 20210511
  9. GLUCOSE [Concomitant]
     Active Substance: DEXTROSE
     Route: 042
     Dates: start: 20210511, end: 20210513
  10. DEXAMETHASONE SODIUM PHOSPHATE. [Concomitant]
     Active Substance: DEXAMETHASONE SODIUM PHOSPHATE
     Route: 042
     Dates: start: 20210507, end: 20210507
  11. INSULIN [Concomitant]
     Active Substance: INSULIN NOS
     Dosage: 8 U
     Route: 042
     Dates: start: 20210511, end: 20210512
  12. ATEZOLIZUMAB. [Suspect]
     Active Substance: ATEZOLIZUMAB
     Indication: OESOPHAGEAL SQUAMOUS CELL CARCINOMA
     Dosage: MOST RECENT DOSE PRIOR TO SAE/AE: 07/MAY/2021
     Route: 041
     Dates: start: 20210507
  13. REPAGLINIDE. [Concomitant]
     Active Substance: REPAGLINIDE
     Indication: TYPE 2 DIABETES MELLITUS
  14. OMEPRAZOLE SODIUM [Concomitant]
     Active Substance: OMEPRAZOLE SODIUM
     Dates: start: 20210507, end: 20210507
  15. METHOCLOPRAMIDE [Concomitant]
     Active Substance: METOCLOPRAMIDE HYDROCHLORIDE
     Dates: start: 20210507, end: 20210507
  16. GLUCOSE [Concomitant]
     Active Substance: DEXTROSE
     Route: 042
     Dates: start: 20210513, end: 20210513
  17. GLUCOSE AND SODIUM CHLORIDE [Concomitant]
     Active Substance: DEXTROSE\SODIUM CHLORIDE
     Indication: NUTRITIONAL SUPPLEMENTATION
     Route: 042
     Dates: start: 20210510, end: 20210514
  18. TIRAGOLUMAB. [Suspect]
     Active Substance: TIRAGOLUMAB
     Indication: OESOPHAGEAL SQUAMOUS CELL CARCINOMA
     Dosage: MOST RECENT DOSE OF STUDY DRUG PRIOR TO AE/SAE: 07/MAY/2021
     Route: 042
     Dates: start: 20210507
  19. CISPLATIN. [Suspect]
     Active Substance: CISPLATIN
     Indication: OESOPHAGEAL SQUAMOUS CELL CARCINOMA
     Dosage: MOST RECENT DOSE OF STUDY DRUG OF 92.4 MG PRIOR TO AE/SAE: 07/MAY/2021
     Route: 042
     Dates: start: 20210507
  20. MANNITOL. [Concomitant]
     Active Substance: MANNITOL
     Indication: DEHYDRATION
     Dates: start: 20210507, end: 20210507
  21. COMPOUND SODIUM CHLORIDE INJECTION [Concomitant]
     Active Substance: SODIUM CHLORIDE
     Route: 042
     Dates: start: 20210510, end: 20210514
  22. METFORMIN [Concomitant]
     Active Substance: METFORMIN HYDROCHLORIDE
     Indication: TYPE 2 DIABETES MELLITUS
  23. OMEPRAZOLE SODIUM [Concomitant]
     Active Substance: OMEPRAZOLE SODIUM
     Indication: GASTRITIS EROSIVE
     Dates: start: 20210428
  24. FUROSEMIDE. [Concomitant]
     Active Substance: FUROSEMIDE
     Indication: POLYURIA
     Dates: start: 20210507, end: 20210507
  25. GLUCOSE [Concomitant]
     Active Substance: DEXTROSE
     Dates: start: 20210506, end: 20210506
  26. POTASSIUM CHLORIDE. [Concomitant]
     Active Substance: POTASSIUM CHLORIDE
     Dates: start: 20210507, end: 20210507
  27. INSULIN [Concomitant]
     Active Substance: INSULIN NOS
     Route: 058
     Dates: start: 20210513, end: 20210513

REACTIONS (1)
  - Gastrointestinal haemorrhage [Recovered/Resolved]

NARRATIVE: CASE EVENT DATE: 20210510
